FAERS Safety Report 9869824 (Version 1)
Quarter: 2014Q1

REPORT INFORMATION
  Report Type: Spontaneous
  Country: US (occurrence: US)
  Receive Date: 20140205
  Receipt Date: 20140205
  Transmission Date: 20141002
  Serious: No
  Sender: FDA-Public Use
  Company Number: US-GLAXOSMITHKLINE-A1049860A

PATIENT
  Age: 79 Year
  Sex: Female

DRUGS (9)
  1. ARIXTRA [Suspect]
     Indication: THROMBOSIS
     Dosage: 7.5MG PER DAY
     Route: 058
     Dates: start: 201305
  2. LOSARTAN [Concomitant]
  3. LEVOTHYROXINE [Concomitant]
  4. ATENOLOL [Concomitant]
  5. CENTRUM SILVER [Concomitant]
  6. ASPIRIN [Concomitant]
  7. PRESERVISION [Concomitant]
  8. FLAX SEED OIL [Concomitant]
  9. MELATONIN [Concomitant]

REACTIONS (1)
  - Injection site bruising [Not Recovered/Not Resolved]
